FAERS Safety Report 4881822-X (Version None)
Quarter: 2006Q1

REPORT INFORMATION
  Report Type: 
  Country: None (occurrence: None)
  Receive Date: 20060117
  Receipt Date: 20050601
  Transmission Date: 20060701
  Serious: Yes (Other)
  Sender: FDA-Public Use
  Company Number: PT-AMGEN-UK137326

PATIENT
  Sex: Female
  Weight: 72 kg

DRUGS (12)
  1. CINACALCET [Suspect]
     Indication: HYPERPARATHYROIDISM SECONDARY
     Route: 048
     Dates: start: 20020619, end: 20020924
  2. CALCIUM CARBONATE [Concomitant]
     Dates: start: 20020131
  3. OMEPRAZOLE [Concomitant]
     Dates: start: 20020131
  4. ASPIRIN [Concomitant]
     Dates: start: 20001014
  5. FOLIC ACID [Concomitant]
     Dates: start: 19910514
  6. BECOZYME [Concomitant]
     Dates: start: 19910514
  7. DARBEPOETIN ALFA [Concomitant]
     Dates: start: 20010514
  8. VENOFER [Concomitant]
     Dates: start: 20020520
  9. VITAMIN B-12 [Concomitant]
     Dates: start: 20020131
  10. NOLOTIL /SPA/ [Concomitant]
     Dates: start: 20020924, end: 20021029
  11. TRAMAL [Concomitant]
     Dates: start: 20021024
  12. TRENTAL [Concomitant]
     Dates: start: 20020924

REACTIONS (2)
  - DISEASE PROGRESSION [None]
  - HYPERPARATHYROIDISM SECONDARY [None]
